FAERS Safety Report 9435080 (Version 1)
Quarter: 2013Q3

REPORT INFORMATION
  Report Type: Spontaneous
  Country: FR (occurrence: FR)
  Receive Date: 20130801
  Receipt Date: 20130801
  Transmission Date: 20140515
  Serious: Yes (Other)
  Sender: FDA-Public Use
  Company Number: FR-ABBOTT-13P-056-1124242-00

PATIENT
  Age: 47 Year
  Sex: Female

DRUGS (6)
  1. NORVIR [Suspect]
     Indication: HIV INFECTION
     Route: 048
     Dates: start: 20051115, end: 20110705
  2. NORVIR [Suspect]
     Dates: start: 20111123
  3. SUSTIVA [Suspect]
     Indication: HIV INFECTION
     Route: 048
     Dates: start: 20110705, end: 20111123
  4. TRUVADA [Suspect]
     Indication: HIV INFECTION
     Route: 048
     Dates: start: 20051115
  5. REYATAZ [Suspect]
     Indication: HIV INFECTION
     Route: 048
     Dates: start: 20051115, end: 20110705
  6. REYATAZ [Suspect]
     Dates: start: 20111123

REACTIONS (7)
  - Carpal tunnel syndrome [Unknown]
  - Hypercholesterolaemia [Not Recovered/Not Resolved]
  - Urinary tract infection [Unknown]
  - Sexually transmitted disease [Unknown]
  - Hypercholesterolaemia [Unknown]
  - Amenorrhoea [Unknown]
  - Nervous system disorder [Unknown]
